FAERS Safety Report 5633082-X (Version None)
Quarter: 2008Q1

REPORT INFORMATION
  Report Type: 
  Country: None (occurrence: None)
  Receive Date: 20080221
  Receipt Date: 20080212
  Transmission Date: 20080703
  Serious: Yes (Hospitalization)
  Sender: FDA-Public Use
  Company Number: FR-AVENTIS-200714133FR

PATIENT
  Age: 79 Year
  Sex: Female

DRUGS (11)
  1. PROFENID [Suspect]
     Route: 042
     Dates: start: 20070921, end: 20070921
  2. ULTRACET [Suspect]
     Route: 048
     Dates: start: 20070922, end: 20070922
  3. ULTRACET [Suspect]
     Route: 048
     Dates: start: 20071005, end: 20071012
  4. LOVENOX [Suspect]
     Indication: PROPHYLAXIS
     Route: 058
     Dates: start: 20070921, end: 20071019
  5. NEXIUM [Suspect]
     Indication: PANCREATITIS
     Route: 048
     Dates: start: 20070923, end: 20071012
  6. PERFALGAN [Suspect]
     Route: 042
     Dates: start: 20070921, end: 20070924
  7. DAFALGAN                           /00020001/ [Suspect]
     Route: 048
     Dates: start: 20070922, end: 20071001
  8. CLAMOXYL                           /00249601/ [Suspect]
     Indication: PROPHYLAXIS
     Route: 042
     Dates: start: 20070921, end: 20070921
  9. GENTAMICIN [Suspect]
     Indication: PROPHYLAXIS
     Route: 042
     Dates: start: 20070921, end: 20070921
  10. CEFACIDAL [Suspect]
     Indication: PROPHYLAXIS
     Route: 042
     Dates: start: 20070922, end: 20070923
  11. LAROXYL [Suspect]
     Route: 048

REACTIONS (2)
  - LEUKOPENIA [None]
  - NEUTROPENIA [None]
